FAERS Safety Report 12896434 (Version 1)
Quarter: 2016Q4

REPORT INFORMATION
  Report Type: Spontaneous
  Country: US (occurrence: US)
  Receive Date: 20161031
  Receipt Date: 20161031
  Transmission Date: 20170207
  Serious: No
  Sender: FDA-Public Use
  Company Number: US-JAZZ-2016-US-016596

PATIENT
  Sex: Female

DRUGS (24)
  1. IBUPROFEN. [Concomitant]
     Active Substance: IBUPROFEN
  2. IMITREX [Concomitant]
     Active Substance: SUMATRIPTAN SUCCINATE
  3. PROVIGIL [Concomitant]
     Active Substance: MODAFINIL
  4. FLONASE [Concomitant]
     Active Substance: FLUTICASONE PROPIONATE
  5. TROKENDI [Concomitant]
     Active Substance: TOPIRAMATE
  6. NUVIGIL [Concomitant]
     Active Substance: ARMODAFINIL
  7. TRETINOIN. [Concomitant]
     Active Substance: TRETINOIN
  8. TOPIRAMATE. [Concomitant]
     Active Substance: TOPIRAMATE
  9. LEXAPRO [Concomitant]
     Active Substance: ESCITALOPRAM OXALATE
  10. EQUETRO [Concomitant]
     Active Substance: CARBAMAZEPINE
  11. ACTICLATE [Concomitant]
     Active Substance: DOXYCYCLINE HYCLATE
  12. CALCIUM [Concomitant]
     Active Substance: CALCIUM
  13. SYNTHROID [Concomitant]
     Active Substance: LEVOTHYROXINE SODIUM
  14. DEPLIN [Concomitant]
     Active Substance: LEVOMEFOLATE CALCIUM
  15. EXCEDRIN MIGRAINE [Concomitant]
     Active Substance: ACETAMINOPHEN\ASPIRIN\CAFFEINE
  16. L-METHYLFOLATE CALCIUM [Concomitant]
     Active Substance: LEVOMEFOLATE CALCIUM
  17. SUDAFED [Concomitant]
     Active Substance: PSEUDOEPHEDRINE HYDROCHLORIDE
  18. ACZONE [Concomitant]
     Active Substance: DAPSONE
  19. SPIRONOLACTONE. [Concomitant]
     Active Substance: SPIRONOLACTONE
  20. XYREM [Suspect]
     Active Substance: SODIUM OXYBATE
     Indication: NARCOLEPSY
     Dosage: 4.5 G, BID
     Route: 048
     Dates: start: 200912, end: 2010
  21. XYREM [Suspect]
     Active Substance: SODIUM OXYBATE
     Indication: CATAPLEXY
     Dosage: 4.5 G, BID
     Route: 048
     Dates: start: 201108
  22. CAMRESE [Concomitant]
     Active Substance: ETHINYL ESTRADIOL\LEVONORGESTREL
  23. BELVIQ [Concomitant]
     Active Substance: LORCASERIN HYDROCHLORIDE
  24. INTUNIV [Concomitant]
     Active Substance: GUANFACINE HYDROCHLORIDE

REACTIONS (3)
  - Nasal congestion [Unknown]
  - Insulin resistance [Unknown]
  - Hypersensitivity [Unknown]
